FAERS Safety Report 4615837-3 (Version None)
Quarter: 2005Q1

REPORT INFORMATION
  Report Type: 
  Country: None (occurrence: None)
  Receive Date: 20050321
  Receipt Date: 20050303
  Transmission Date: 20050727
  Serious: Yes (Other)
  Sender: FDA-Public Use
  Company Number: TRP_0080_2005

PATIENT
  Age: 53 Year
  Sex: Female

DRUGS (6)
  1. RIBASPHERE [Suspect]
     Indication: HEPATITIS C
     Dates: start: 20050128, end: 20050204
  2. PEG-INTRON [Suspect]
     Indication: HEPATITIS C
     Dates: start: 20050128, end: 20050204
  3. ACIPHEX [Concomitant]
  4. BEXTRA [Concomitant]
  5. XANAX [Concomitant]
  6. ZOLOFT [Concomitant]

REACTIONS (2)
  - AGGRESSION [None]
  - PSYCHIATRIC SYMPTOM [None]
